FAERS Safety Report 8198807-0 (Version None)
Quarter: 2012Q1

REPORT INFORMATION
  Report Type: 
  Country: None (occurrence: None)
  Receive Date: 20120309
  Receipt Date: 20120217
  Transmission Date: 20120608
  Serious: No
  Sender: FDA-Public Use
  Company Number: US-AMGEN-USASP2011059490

PATIENT
  Age: 59 Year
  Sex: Female

DRUGS (3)
  1. CALCIUM [Concomitant]
     Dosage: 1200 MG, UNK
  2. PROLIA [Suspect]
     Indication: OSTEOPOROSIS
     Dosage: 60 MG, UNK
     Route: 058
     Dates: start: 20111004
  3. VITAMIN D [Concomitant]

REACTIONS (3)
  - HYPOAESTHESIA [None]
  - PRURITUS [None]
  - PARAESTHESIA ORAL [None]
